FAERS Safety Report 24003356 (Version 1)
Quarter: 2024Q2

REPORT INFORMATION
  Report Type: Spontaneous
  Country: CA (occurrence: CA)
  Receive Date: 20240624
  Receipt Date: 20240624
  Transmission Date: 20240715
  Serious: Yes (Other)
  Sender: FDA-Public Use
  Company Number: CA-HALEON-2182281

PATIENT
  Age: 81 Year
  Sex: Male

DRUGS (1)
  1. DICLOFENAC DIETHYLAMINE [Suspect]
     Active Substance: DICLOFENAC DIETHYLAMINE
     Indication: Pain

REACTIONS (3)
  - Foreign body in throat [Recovered/Resolved]
  - Product use complaint [Unknown]
  - Pharyngeal swelling [Recovered/Resolved]
